FAERS Safety Report 23886985 (Version 1)
Quarter: 2024Q2

REPORT INFORMATION
  Report Type: Spontaneous
  Country: CA (occurrence: CA)
  Receive Date: 20240523
  Receipt Date: 20240523
  Transmission Date: 20240716
  Serious: Yes (Hospitalization)
  Sender: FDA-Public Use
  Company Number: CA-NOVOPROD-1223104

PATIENT
  Sex: Male

DRUGS (2)
  1. TRESIBA [Suspect]
     Active Substance: INSULIN DEGLUDEC
     Indication: Product used for unknown indication
     Dosage: BASE OF 10 OR 8 OR 12 UNITS DUE TO ACTIVITY
     Route: 058
     Dates: start: 20230720
  2. HUMALOG [Suspect]
     Active Substance: INSULIN LISPRO
     Indication: Product used for unknown indication
     Dosage: UNK
     Dates: start: 20230720

REACTIONS (3)
  - Diabetic ketoacidosis [Recovered/Resolved]
  - Diabetic ketoacidosis [Recovered/Resolved]
  - Infection [Recovered/Resolved]
